FAERS Safety Report 23314525 (Version 1)
Quarter: 2023Q4

REPORT INFORMATION
  Report Type: Spontaneous
  Country: RU (occurrence: RU)
  Receive Date: 20231219
  Receipt Date: 20231219
  Transmission Date: 20240110
  Serious: Yes (Other)
  Sender: FDA-Public Use
  Company Number: RU-PFIZER INC-202300444704

PATIENT
  Age: 61 Year
  Sex: Female

DRUGS (1)
  1. BOSUTINIB [Suspect]
     Active Substance: BOSUTINIB
     Dosage: UNK

REACTIONS (6)
  - Pericardial effusion [Unknown]
  - Pulmonary hypertension [Unknown]
  - Mitral valve thickening [Unknown]
  - Aortic disorder [Unknown]
  - Aortic valve thickening [Unknown]
  - Dilatation atrial [Unknown]
